FAERS Safety Report 10936584 (Version 1)
Quarter: 2015Q1

REPORT INFORMATION
  Report Type: Spontaneous
  Country: US (occurrence: None)
  Receive Date: 20150320
  Receipt Date: 20150320
  Transmission Date: 20150721
  Serious: Yes (Other)
  Sender: FDA-Public Use
  Company Number: None

PATIENT
  Age: 54 Year
  Sex: Male
  Weight: 82.8 kg

DRUGS (10)
  1. QUETIAPINE [Concomitant]
     Active Substance: QUETIAPINE
  2. NAPROXEN. [Concomitant]
     Active Substance: NAPROXEN
  3. AMITRIPTYLINE [Concomitant]
     Active Substance: AMITRIPTYLINE
  4. MULTIPLE VITAMIN/MINERALS [Concomitant]
  5. HARVONI [Suspect]
     Active Substance: LEDIPASVIR\SOFOSBUVIR
     Indication: HEPATITIS C
     Dosage: 1 TABLET
     Route: 048
     Dates: start: 20150115, end: 20150312
  6. FLUOXETINE [Concomitant]
     Active Substance: FLUOXETINE\FLUOXETINE HYDROCHLORIDE
  7. GABAPENTIN. [Concomitant]
     Active Substance: GABAPENTIN
  8. METOPROLOL [Concomitant]
     Active Substance: METOPROLOL
  9. CHOLECALCIFEROL [Concomitant]
     Active Substance: CHOLECALCIFEROL
  10. METHOCARBAOL [Concomitant]

REACTIONS (1)
  - Hypoglycaemia [None]

NARRATIVE: CASE EVENT DATE: 20150312
